FAERS Safety Report 15105227 (Version 1)
Quarter: 2018Q3

REPORT INFORMATION
  Report Type: Spontaneous
  Country: FR (occurrence: FR)
  Receive Date: 20180704
  Receipt Date: 20180704
  Transmission Date: 20181010
  Serious: Yes (Other)
  Sender: FDA-Public Use
  Company Number: FR-ABBVIE-18S-056-2408827-00

PATIENT
  Age: 28 Year
  Sex: Female

DRUGS (3)
  1. JOSAMYCINE [Suspect]
     Active Substance: JOSAMYCIN
     Indication: COUGH
     Route: 048
  2. CLARITHROMYCIN. [Suspect]
     Active Substance: CLARITHROMYCIN
     Indication: COUGH
     Route: 048
  3. SPIRAMYCIN [Suspect]
     Active Substance: SPIRAMYCIN
     Indication: CHLAMYDIAL INFECTION
     Route: 048

REACTIONS (1)
  - Pancreatitis [Recovered/Resolved]

NARRATIVE: CASE EVENT DATE: 20170223
